FAERS Safety Report 7027413-6 (Version None)
Quarter: 2010Q3

REPORT INFORMATION
  Report Type: 
  Country: None (occurrence: None)
  Receive Date: 20100930
  Receipt Date: 20100914
  Transmission Date: 20110219
  Serious: Yes (Other)
  Sender: FDA-Public Use
  Company Number: TRP_07266_2010

PATIENT

DRUGS (4)
  1. AMPHOTERICIN B [Suspect]
     Indication: VISCERAL LEISHMANIASIS
     Dosage: (0.5 MG/KG PER DAY FOR 1 DAY), (1.5 MG/KG PER DAY FOR 1 DAY), (2 MG/KG PER DAY FOR 4 DAYS)
  2. AMPHOTERICIN B [Suspect]
     Indication: VISCERAL LEISHMANIASIS
     Dosage: (0.5 MG/KG PER DAY FOR 1 DAY), (1.5 MG/KG PER DAY FOR 1 DAY), (2 MG/KG PER DAY FOR 4 DAYS)
  3. AMPHOTERICIN B [Suspect]
     Indication: VISCERAL LEISHMANIASIS
     Dosage: (0.5 MG/KG PER DAY FOR 1 DAY), (1.5 MG/KG PER DAY FOR 1 DAY), (2 MG/KG PER DAY FOR 4 DAYS)
  4. PARACETAMOL [Concomitant]

REACTIONS (11)
  - BACK PAIN [None]
  - DISEASE RECURRENCE [None]
  - HAEMOGLOBIN DECREASED [None]
  - HEPATITIS [None]
  - HYPERSENSITIVITY [None]
  - HYPOKALAEMIA [None]
  - HYPOTENSION [None]
  - NEPHROPATHY TOXIC [None]
  - PLATELET COUNT DECREASED [None]
  - TREATMENT FAILURE [None]
  - VISCERAL LEISHMANIASIS [None]
